FAERS Safety Report 20552777 (Version 1)
Quarter: 2022Q1

REPORT INFORMATION
  Report Type: Spontaneous
  Country: US (occurrence: None)
  Receive Date: 20220303
  Receipt Date: 20220303
  Transmission Date: 20220423
  Serious: Yes (Disabling, Other)
  Sender: FDA-Public Use
  Company Number: None

PATIENT
  Age: 73 Year
  Sex: Male
  Weight: 105.75 kg

DRUGS (14)
  1. BRUT CLASSIC ANTI-PERSPIRANT AND DEODORANT [Suspect]
     Active Substance: ALUMINUM ZIRCONIUM TETRACHLOROHYDREX GLY
     Indication: Personal hygiene
     Route: 061
  2. METFORMIN [Concomitant]
  3. IRBESARTAN [Concomitant]
     Active Substance: IRBESARTAN
  4. ELIQUIS [Concomitant]
     Active Substance: APIXABAN
  5. BUMETANIDE [Concomitant]
     Active Substance: BUMETANIDE
  6. CARVEDILOL [Concomitant]
     Active Substance: CARVEDILOL
  7. ATORVASTATIN [Concomitant]
     Active Substance: ATORVASTATIN
  8. COENZYME Q10 [Concomitant]
     Active Substance: DIETARY SUPPLEMENT\UBIDECARENONE
  9. MINERALS\VITAMINS [Concomitant]
     Active Substance: MINERALS\VITAMINS
  10. NIACIN [Concomitant]
     Active Substance: NIACIN
  11. PYRIDOXINE HYDROCHLORIDE [Concomitant]
     Active Substance: PYRIDOXINE HYDROCHLORIDE
  12. VITAMIN B12 [Concomitant]
     Active Substance: CYANOCOBALAMIN
  13. JWH-018 [Concomitant]
     Active Substance: JWH-018
  14. MAGNESIUM GLYCINATE [Suspect]
     Active Substance: MAGNESIUM GLYCINATE

REACTIONS (6)
  - Recalled product [None]
  - Headache [None]
  - Feeling abnormal [None]
  - Stress at work [None]
  - Dysarthria [None]
  - Loss of employment [None]

NARRATIVE: CASE EVENT DATE: 20220207
